FAERS Safety Report 16103430 (Version 2)
Quarter: 2019Q1

REPORT INFORMATION
  Report Type: Report from Study
  Country: CA (occurrence: CA)
  Receive Date: 20190322
  Receipt Date: 20190329
  Transmission Date: 20190418
  Serious: Yes (Hospitalization, Other)
  Sender: FDA-Public Use
  Company Number: CA-BRISTOL-MYERS SQUIBB COMPANY-BMS-2018-118321

PATIENT
  Age: 75 Year
  Sex: Female

DRUGS (1)
  1. ABATACEPT [Suspect]
     Active Substance: ABATACEPT
     Indication: RHEUMATOID ARTHRITIS
     Dosage: 125 MG, QWK
     Route: 058
     Dates: start: 20181113

REACTIONS (16)
  - Muscle rupture [Unknown]
  - Haematoma [Unknown]
  - Arterial rupture [Unknown]
  - Myalgia [Not Recovered/Not Resolved]
  - Influenza [Recovering/Resolving]
  - Nerve injury [Unknown]
  - Arthropod bite [Unknown]
  - Pain in extremity [Unknown]
  - Headache [Unknown]
  - Increased tendency to bruise [Unknown]
  - Gait disturbance [Unknown]
  - Feeling abnormal [Unknown]
  - Muscle spasms [Unknown]
  - Groin infection [Unknown]
  - Pain [Unknown]
  - Skin exfoliation [Unknown]

NARRATIVE: CASE EVENT DATE: 201902
